FAERS Safety Report 19501593 (Version 1)
Quarter: 2021Q3

REPORT INFORMATION
  Report Type: Spontaneous
  Country: IE (occurrence: IE)
  Receive Date: 20210707
  Receipt Date: 20210707
  Transmission Date: 20211014
  Serious: Yes (Other)
  Sender: FDA-Public Use
  Company Number: NVSC2021IE149971

PATIENT
  Age: 64 Year
  Sex: Female

DRUGS (1)
  1. ESTRADIOL + NORETHISTERONE ACETATE [Suspect]
     Active Substance: ESTRADIOL\NORETHINDRONE ACETATE
     Indication: PRODUCT USED FOR UNKNOWN INDICATION
     Dosage: 75 UG
     Route: 062

REACTIONS (1)
  - Pulmonary embolism [Unknown]
